FAERS Safety Report 16919802 (Version 1)
Quarter: 2019Q4

REPORT INFORMATION
  Report Type: Spontaneous
  Country: FR (occurrence: FR)
  Receive Date: 20191015
  Receipt Date: 20191015
  Transmission Date: 20200122
  Serious: Yes (Hospitalization)
  Sender: FDA-Public Use
  Company Number: FR-TEVA-2019-FR-1120365

PATIENT
  Age: 69 Year
  Sex: Female
  Weight: 48 kg

DRUGS (7)
  1. BIKTARVY 50 MG/200 MG/25 MG, COMPRIME PELLICULE [Concomitant]
  2. SPECIAFOLDINE [Concomitant]
     Active Substance: FOLIC ACID
  3. LEXOMIL 12 MG, COMPRIME [Concomitant]
     Active Substance: BROMAZEPAM
  4. BACTRIM [Concomitant]
     Active Substance: SULFAMETHOXAZOLE\TRIMETHOPRIM
  5. AMOXICILLINE [Concomitant]
     Active Substance: AMOXICILLIN
  6. DOXORUBICINE [Suspect]
     Active Substance: DOXORUBICIN
     Indication: UNDIFFERENTIATED SARCOMA
     Dosage: C2, 54 MG PER DAY
     Route: 041
     Dates: start: 20190803, end: 20190804
  7. SKENAN [Concomitant]
     Active Substance: MORPHINE SULFATE

REACTIONS (1)
  - Left ventricular dysfunction [Recovering/Resolving]

NARRATIVE: CASE EVENT DATE: 20190805
